FAERS Safety Report 7286173-4 (Version None)
Quarter: 2011Q1

REPORT INFORMATION
  Report Type: 
  Country: None (occurrence: None)
  Receive Date: 20110210
  Receipt Date: 20110111
  Transmission Date: 20110831
  Serious: Yes (Hospitalization)
  Sender: FDA-Public Use
  Company Number: US-ASTRAZENECA-2011SE01906

PATIENT
  Age: 83 Year
  Sex: Female

DRUGS (8)
  1. CRESTOR [Suspect]
     Route: 048
     Dates: start: 20070101
  2. ATENOLOL [Concomitant]
     Route: 048
  3. CAPTOPRIL [Concomitant]
     Route: 048
  4. TYLENOL-500 [Concomitant]
     Route: 048
  5. LEVOTHYROXINE SODIUM [Concomitant]
     Route: 048
  6. SODIUM CHLORIDE [Concomitant]
     Route: 048
  7. NORVASC [Concomitant]
     Route: 048
  8. COLACE [Concomitant]
     Route: 048

REACTIONS (7)
  - NERVOUS SYSTEM DISORDER [None]
  - CEREBRAL HAEMORRHAGE [None]
  - INAPPROPRIATE ANTIDIURETIC HORMONE SECRETION [None]
  - URINARY TRACT INFECTION ENTEROCOCCAL [None]
  - FALL [None]
  - HYPONATRAEMIA [None]
  - CARDIOMYOPATHY [None]
